FAERS Safety Report 21322830 (Version 1)
Quarter: 2022Q3

REPORT INFORMATION
  Report Type: Report from Study
  Country: DE (occurrence: DE)
  Receive Date: 20220912
  Receipt Date: 20220912
  Transmission Date: 20221027
  Serious: Yes (Death, Other)
  Sender: FDA-Public Use
  Company Number: DE-ABBVIE-22K-062-4529413-00

PATIENT
  Sex: Male
  Weight: 85 kg

DRUGS (1)
  1. ADALIMUMAB [Suspect]
     Active Substance: ADALIMUMAB
     Indication: Psoriasis
     Route: 058
     Dates: start: 20130408, end: 20130423

REACTIONS (1)
  - Colon cancer [Fatal]
